FAERS Safety Report 21229627 (Version 5)
Quarter: 2022Q4

REPORT INFORMATION
  Report Type: Report from Study
  Country: CN (occurrence: CN)
  Receive Date: 20220818
  Receipt Date: 20221201
  Transmission Date: 20230113
  Serious: Yes (Hospitalization)
  Sender: FDA-Public Use
  Company Number: CN-PFIZER INC-PV202200023583

PATIENT
  Age: 70 Year
  Sex: Male
  Weight: 65 kg

DRUGS (43)
  1. SASANLIMAB [Suspect]
     Active Substance: SASANLIMAB
     Indication: Bladder neoplasm
     Dosage: 300 MG, REGIMEN: ONCE
     Route: 058
     Dates: start: 20210929, end: 20220706
  2. BCG VACCINE [Suspect]
     Active Substance: BCG VACCINE
     Indication: Bladder neoplasm
     Dosage: 120 MG, REGIMEN: ONCE; ROUTE: IRRIGATION OF BLADDER
     Dates: start: 20210929, end: 20220518
  3. PIPERACILLIN SODIUM\TAZOBACTAM SODIUM [Suspect]
     Active Substance: PIPERACILLIN SODIUM\TAZOBACTAM SODIUM
     Indication: Pulmonary tuberculosis
     Dosage: 3.375 G, 2X/DAY
     Route: 041
     Dates: start: 20220525, end: 20220525
  4. PIPERACILLIN SODIUM\TAZOBACTAM SODIUM [Suspect]
     Active Substance: PIPERACILLIN SODIUM\TAZOBACTAM SODIUM
     Dosage: 3.375 G, ST
     Route: 041
     Dates: start: 20220525, end: 20220525
  5. PIPERACILLIN SODIUM\TAZOBACTAM SODIUM [Suspect]
     Active Substance: PIPERACILLIN SODIUM\TAZOBACTAM SODIUM
     Dosage: 3.375 G, 3X/DAY (Q8H)
     Route: 041
     Dates: start: 20220526, end: 20220630
  6. CALCIUM CHLORIDE\POTASSIUM CHLORIDE\SODIUM CHLORIDE\SODIUM LACTATE [Suspect]
     Active Substance: CALCIUM CHLORIDE\POTASSIUM CHLORIDE\SODIUM CHLORIDE\SODIUM LACTATE
     Indication: Pulmonary tuberculosis
     Dosage: 500 ML, ST, INJECTION (ONCE)
     Route: 041
     Dates: start: 20220525, end: 20220525
  7. CALCIUM CHLORIDE\POTASSIUM CHLORIDE\SODIUM CHLORIDE\SODIUM LACTATE [Suspect]
     Active Substance: CALCIUM CHLORIDE\POTASSIUM CHLORIDE\SODIUM CHLORIDE\SODIUM LACTATE
     Dosage: 500 ML, ST, INJECTION (ONCE)
     Route: 041
     Dates: start: 20220603, end: 20220603
  8. CALCIUM CHLORIDE\POTASSIUM CHLORIDE\SODIUM CHLORIDE\SODIUM LACTATE [Suspect]
     Active Substance: CALCIUM CHLORIDE\POTASSIUM CHLORIDE\SODIUM CHLORIDE\SODIUM LACTATE
     Dosage: 500 ML, 1X/DAY, INJECTION
     Route: 041
     Dates: start: 20220526, end: 20220604
  9. ISONIAZID [Suspect]
     Active Substance: ISONIAZID
     Indication: Pulmonary tuberculosis
     Dosage: 300 MG, ST, INJECTION
     Route: 041
     Dates: start: 20220524, end: 20220524
  10. ISONIAZID [Suspect]
     Active Substance: ISONIAZID
     Dosage: 300 MG, ST, INJECTION
     Route: 041
     Dates: start: 20220525, end: 20220525
  11. ISONIAZID [Suspect]
     Active Substance: ISONIAZID
     Dosage: 300 MG, 1X/DAY, INJECTION
     Route: 041
     Dates: start: 20220525, end: 20220604
  12. RIFAMPIN [Suspect]
     Active Substance: RIFAMPIN
     Indication: Pulmonary tuberculosis
     Dosage: 0.6 G, ST,INJECTION
     Route: 041
     Dates: start: 20220524, end: 20220524
  13. RIFAMPIN [Suspect]
     Active Substance: RIFAMPIN
     Dosage: 0.6 G, ST, INJECTION
     Route: 041
     Dates: start: 20220525, end: 20220525
  14. RIFAMPIN [Suspect]
     Active Substance: RIFAMPIN
     Dosage: 0.6 G, 1X/DAY, INJECTION
     Route: 041
     Dates: start: 20220525, end: 20220604
  15. LEVOFLOXACIN HYDROCHLORIDE [Suspect]
     Active Substance: LEVOFLOXACIN HYDROCHLORIDE
     Indication: Pulmonary tuberculosis
     Dosage: 0.2 G, 2X/DAY, INJECTION
     Route: 041
     Dates: start: 20220522, end: 20220523
  16. CLINDAMYCIN HYDROCHLORIDE [Suspect]
     Active Substance: CLINDAMYCIN HYDROCHLORIDE
     Indication: Pulmonary tuberculosis
     Dosage: 1.2 G, 1X/DAY, INJECTION
     Route: 041
     Dates: start: 20220522, end: 20220523
  17. MOXIFLOXACIN HYDROCHLORIDE [Suspect]
     Active Substance: MOXIFLOXACIN HYDROCHLORIDE
     Indication: Pulmonary tuberculosis
     Dosage: 0.4 G, ST, TABLETS
     Route: 048
     Dates: start: 20220524, end: 20220524
  18. DICLOFENAC SODIUM\LIDOCAINE [Suspect]
     Active Substance: DICLOFENAC SODIUM\LIDOCAINE
     Indication: Pulmonary tuberculosis
     Dosage: 2 ML, ST, INJECTION
     Route: 030
     Dates: start: 20220524, end: 20220524
  19. DICLOFENAC SODIUM\LIDOCAINE [Suspect]
     Active Substance: DICLOFENAC SODIUM\LIDOCAINE
     Dosage: 2 ML, ST, INJECTION
     Route: 030
     Dates: start: 20220525, end: 20220525
  20. DICLOFENAC SODIUM\LIDOCAINE [Suspect]
     Active Substance: DICLOFENAC SODIUM\LIDOCAINE
     Dosage: 2 ML, ST, INJECTION
     Route: 030
     Dates: start: 20220525, end: 20220525
  21. DICLOFENAC SODIUM\LIDOCAINE [Suspect]
     Active Substance: DICLOFENAC SODIUM\LIDOCAINE
     Dosage: 2 ML, ST, INJECTION
     Route: 030
     Dates: start: 20220526, end: 20220526
  22. DICLOFENAC SODIUM\LIDOCAINE [Suspect]
     Active Substance: DICLOFENAC SODIUM\LIDOCAINE
     Dosage: 2 ML, ST, INJECTION
     Route: 030
     Dates: start: 20220528, end: 20220528
  23. DICLOFENAC SODIUM\LIDOCAINE [Suspect]
     Active Substance: DICLOFENAC SODIUM\LIDOCAINE
     Dosage: 2 ML, ST, INJECTION
     Route: 030
     Dates: start: 20220529, end: 20220529
  24. DICLOFENAC SODIUM\LIDOCAINE [Suspect]
     Active Substance: DICLOFENAC SODIUM\LIDOCAINE
     Dosage: 2 ML, ST, INJECTION
     Route: 030
     Dates: start: 20220530, end: 20220530
  25. DICLOFENAC SODIUM\LIDOCAINE [Suspect]
     Active Substance: DICLOFENAC SODIUM\LIDOCAINE
     Dosage: 2 ML, ST, INJECTION
     Route: 030
     Dates: start: 20220531, end: 20220531
  26. DICLOFENAC SODIUM\LIDOCAINE [Suspect]
     Active Substance: DICLOFENAC SODIUM\LIDOCAINE
     Dosage: 2 ML, ST, INJECTION
     Route: 030
     Dates: start: 20220602, end: 20220602
  27. DEXTROSE\SODIUM CHLORIDE [Suspect]
     Active Substance: DEXTROSE\SODIUM CHLORIDE
     Indication: Pulmonary tuberculosis
     Dosage: [GLUCOSE 5%]/[SODIUM CHLORIDE], 500 ML, ST, INJECTION
     Route: 041
     Dates: start: 20220525, end: 20220525
  28. DEXTROSE\SODIUM CHLORIDE [Suspect]
     Active Substance: DEXTROSE\SODIUM CHLORIDE
     Dosage: [GLUCOSE 5%]/[SODIUM CHLORIDE], 500 ML, ST, INJECTION
     Route: 041
     Dates: start: 20220525, end: 20220525
  29. DEXTROSE\SODIUM CHLORIDE [Suspect]
     Active Substance: DEXTROSE\SODIUM CHLORIDE
     Dosage: [GLUCOSE 50%]/[SODIUM CHLORIDE], 500 ML, 1X/DAY, INJECTION
     Route: 041
     Dates: start: 20220526, end: 20220604
  30. POTASSIUM CHLORIDE [Suspect]
     Active Substance: POTASSIUM CHLORIDE
     Indication: Pulmonary tuberculosis
     Dosage: 10% POTASSIUM CHLORIDE, 15 ML, ST, INJECTION
     Route: 041
     Dates: start: 20220525, end: 20220525
  31. POTASSIUM CHLORIDE [Suspect]
     Active Substance: POTASSIUM CHLORIDE
     Dosage: 10% POTASSIUM CHLORIDE, 15 ML, 1X/DAY, INJECTION
     Route: 041
     Dates: start: 20220526, end: 20220604
  32. POTASSIUM CHLORIDE [Suspect]
     Active Substance: POTASSIUM CHLORIDE
     Dosage: 10% POTASSIUM CHLORIDE, 10 ML, 1X/DAY, INJECTION
     Route: 041
     Dates: start: 20220526, end: 20220604
  33. LYSINE ACETYLSALICYLATE [Suspect]
     Active Substance: ASPIRIN DL-LYSINE
     Indication: Pulmonary tuberculosis
     Dosage: 0.9 G, ST, INJECTION
     Route: 030
     Dates: start: 20220527, end: 20220527
  34. LYSINE ACETYLSALICYLATE [Suspect]
     Active Substance: ASPIRIN DL-LYSINE
     Dosage: 0.9 G, ST, INJECTION
     Route: 030
     Dates: start: 20220601, end: 20220601
  35. LYSINE ACETYLSALICYLATE [Suspect]
     Active Substance: ASPIRIN DL-LYSINE
     Dosage: 0.9 G, ST, INJECTION
     Route: 030
     Dates: start: 20220603, end: 20220603
  36. DEXAMETHASONE SODIUM PHOSPHATE [Suspect]
     Active Substance: DEXAMETHASONE SODIUM PHOSPHATE
     Indication: Pulmonary tuberculosis
     Dosage: 5 MG, ST, INJECTION
     Route: 042
     Dates: start: 20220603, end: 20220603
  37. MEROPENEM [Suspect]
     Active Substance: MEROPENEM
     Indication: Pulmonary tuberculosis
     Dosage: 1 G, 3X/DAY (Q8H), FOR INJECTION
     Route: 041
     Dates: start: 20220530, end: 20220601
  38. METOCLOPRAMIDE DIHYDROCHLORIDE [Concomitant]
     Indication: Vomiting
     Dosage: 10 MG, SINGLE
     Route: 030
     Dates: start: 20220524, end: 20220524
  39. METOCLOPRAMIDE DIHYDROCHLORIDE [Concomitant]
     Dosage: 10 MG, SINGLE
     Route: 030
     Dates: start: 20220525, end: 20220525
  40. METOCLOPRAMIDE DIHYDROCHLORIDE [Concomitant]
     Dosage: 10 MG, 1X/DAY
     Route: 041
     Dates: start: 20220528, end: 20220604
  41. PHLOROGLUCINOL [Concomitant]
     Active Substance: PHLOROGLUCINOL
     Indication: Vomiting
     Dosage: 200 MG, 1X/DAY
     Route: 041
     Dates: start: 20220529, end: 20220604
  42. ALANYL GLUTAMINE [Concomitant]
     Active Substance: ALANYL GLUTAMINE
     Indication: Vomiting
     Dosage: 40 MG, 1X/DAY
     Route: 041
     Dates: start: 20220602, end: 20220604
  43. DL-ALPHA TOCOPHERYL ACETATE/GLYCEROL/GLYCINE MAX SEED OIL/LECITHIN/MED [Concomitant]
     Indication: Vomiting
     Dosage: 250 ML, 1X/DAY, MEDIUM AND LONG CHAIN FAT EMULSION
     Route: 041
     Dates: start: 20220602, end: 20220604

REACTIONS (1)
  - Drug-induced liver injury [Not Recovered/Not Resolved]

NARRATIVE: CASE EVENT DATE: 20220605
